FAERS Safety Report 6683332-6 (Version None)
Quarter: 2010Q2

REPORT INFORMATION
  Report Type: 
  Country: None (occurrence: None)
  Receive Date: 20100415
  Receipt Date: 20100405
  Transmission Date: 20101027
  Serious: Yes (Other)
  Sender: FDA-Public Use
  Company Number: PHHY2010IT21034

PATIENT

DRUGS (1)
  1. OCTREOTIDE ACETATE [Suspect]
     Indication: ACROMEGALY
     Dosage: 100 UG, EVERY 2-3 HOURS
     Route: 058

REACTIONS (3)
  - ABORTION INDUCED [None]
  - DRUG EXPOSURE DURING PREGNANCY [None]
  - HEADACHE [None]
